FAERS Safety Report 7774615-7 (Version None)
Quarter: 2011Q3

REPORT INFORMATION
  Report Type: 
  Country: None (occurrence: None)
  Receive Date: 20110923
  Receipt Date: 20110915
  Transmission Date: 20111222
  Serious: Yes (Hospitalization)
  Sender: FDA-Public Use
  Company Number: CN-NOVOPROD-334775

PATIENT

DRUGS (1)
  1. NOVOLIN R [Suspect]
     Indication: DIABETES MELLITUS
     Dosage: 12 IU IN THE MORNING AND 8 IU IN THE AFTERNOON.
     Dates: start: 20110818

REACTIONS (8)
  - PRODUCT COUNTERFEIT [None]
  - INJECTION SITE HAEMORRHAGE [None]
  - MALAISE [None]
  - BLOOD GLUCOSE INCREASED [None]
  - HAEMOPTYSIS [None]
  - LIQUID PRODUCT PHYSICAL ISSUE [None]
  - DEVICE FAILURE [None]
  - PRODUCT QUALITY ISSUE [None]
